FAERS Safety Report 8155436-2 (Version None)
Quarter: 2012Q1

REPORT INFORMATION
  Report Type: 
  Country: None (occurrence: None)
  Receive Date: 20120206
  Receipt Date: 20110503
  Transmission Date: 20120608
  Serious: Yes (Other)
  Sender: FDA-Public Use
  Company Number: 2012030974

PATIENT
  Sex: Female

DRUGS (1)
  1. PRIVIGEN [Suspect]
     Indication: MEASLES IMMUNISATION

REACTIONS (3)
  - TOXOPLASMA SEROLOGY POSITIVE [None]
  - TRANSMISSION OF AN INFECTIOUS AGENT VIA A MEDICINAL PRODUCT [None]
  - MATERNAL EXPOSURE DURING PREGNANCY [None]
